FAERS Safety Report 23880038 (Version 2)
Quarter: 2024Q2

REPORT INFORMATION
  Report Type: Spontaneous
  Country: DE (occurrence: DE)
  Receive Date: 20240521
  Receipt Date: 20240610
  Transmission Date: 20240716
  Serious: Yes (Hospitalization, Other)
  Sender: FDA-Public Use
  Company Number: DE-BAYER-2023A095780

PATIENT
  Age: 37 Year
  Sex: Female
  Weight: 83 kg

DRUGS (1)
  1. LEVONORGESTREL [Suspect]
     Active Substance: LEVONORGESTREL
     Indication: Contraception
     Dosage: 14?G/DAY
     Route: 015
     Dates: start: 202209, end: 20231108

REACTIONS (10)
  - Pregnancy with contraceptive device [Recovered/Resolved]
  - Amniotic fluid volume decreased [Recovered/Resolved]
  - Haemorrhage in pregnancy [Recovered/Resolved]
  - Placenta praevia haemorrhage [Recovered/Resolved]
  - Haemorrhage in pregnancy [Recovered/Resolved]
  - Procedural haemorrhage [Recovered/Resolved]
  - Device dislocation [Recovered/Resolved]
  - Abortion induced [Recovered/Resolved]
  - Complication of device removal [None]
  - Drug ineffective [None]

NARRATIVE: CASE EVENT DATE: 20230623
